FAERS Safety Report 24640363 (Version 3)
Quarter: 2024Q4

REPORT INFORMATION
  Report Type: Spontaneous
  Country: DE (occurrence: DE)
  Receive Date: 20241120
  Receipt Date: 20241220
  Transmission Date: 20250114
  Serious: Yes (Other)
  Sender: AUROBINDO
  Company Number: DE-BRISTOL-MYERS SQUIBB COMPANY-2024-166911

PATIENT
  Age: 59 Year
  Sex: Female

DRUGS (2)
  1. AZACITIDINE [Suspect]
     Active Substance: AZACITIDINE
     Indication: Glioblastoma
     Dosage: UNK
     Route: 065
     Dates: start: 202202
  2. AZACITIDINE [Suspect]
     Active Substance: AZACITIDINE
     Indication: Acute myeloid leukaemia

REACTIONS (6)
  - Thrombocytopenia [Unknown]
  - Cerebral haemorrhage [Unknown]
  - Infection [Unknown]
  - Injection site reaction [Unknown]
  - Gastrointestinal disorder [Unknown]
  - Myelosuppression [Unknown]

NARRATIVE: CASE EVENT DATE: 20220101
